FAERS Safety Report 5100339-0 (Version None)
Quarter: 2006Q3

REPORT INFORMATION
  Report Type: 
  Country: None (occurrence: None)
  Receive Date: 20060731
  Receipt Date: 20060517
  Transmission Date: 20061208
  Serious: No
  Sender: FDA-Public Use
  Company Number: 2006PV014024

PATIENT
  Age: 45 Year
  Sex: Female

DRUGS (3)
  1. BYETTA [Suspect]
     Indication: DRUG USE FOR UNKNOWN INDICATION
     Dosage: 5 MCG;QD;
     Dates: start: 20060301
  2. HUMALOG PEN [Suspect]
     Indication: BLOOD GLUCOSE
     Dosage: SC
     Route: 058
  3. LANTUS [Concomitant]

REACTIONS (4)
  - INJECTION SITE HAEMORRHAGE [None]
  - RECTAL ABSCESS [None]
  - TREMOR [None]
  - WEIGHT INCREASED [None]
